FAERS Safety Report 5453647-8 (Version None)
Quarter: 2007Q3

REPORT INFORMATION
  Report Type: 
  Country: None (occurrence: None)
  Receive Date: 20070917
  Receipt Date: 20070910
  Transmission Date: 20080115
  Serious: Yes (Other)
  Sender: FDA-Public Use
  Company Number: PHBS2007BR14938

PATIENT
  Sex: Male
  Weight: 94 kg

DRUGS (3)
  1. DIOVAN AMLO [Suspect]
     Dosage: VALS 80 / AMLO 5 MG/DAY
     Route: 048
  2. RIVOTRIL [Concomitant]
     Dosage: 0.5 MG, BID
     Route: 048
  3. CITTA [Concomitant]
     Indication: ANXIETY
     Dosage: 1 TABLET/DAY
     Route: 048

REACTIONS (3)
  - LOW DENSITY LIPOPROTEIN INCREASED [None]
  - VISUAL ACUITY REDUCED [None]
  - WEIGHT DECREASED [None]
